FAERS Safety Report 8576058-5 (Version None)
Quarter: 2012Q3

REPORT INFORMATION
  Report Type: 
  Country: None (occurrence: None)
  Receive Date: 20120807
  Receipt Date: 20111212
  Transmission Date: 20120928
  Serious: No
  Sender: FDA-Public Use
  Company Number: US-FOUGERA-2011FO000056

PATIENT
  Age: 29 Year
  Sex: Female
  Weight: 113.4 kg

DRUGS (2)
  1. LIDOCAINE [Suspect]
     Indication: SKIN ULCER
     Route: 061
     Dates: start: 20111208, end: 20111211
  2. PROAIR HFA [Concomitant]
     Indication: ASTHMA

REACTIONS (1)
  - DRUG INEFFECTIVE [None]
